FAERS Safety Report 23091710 (Version 1)
Quarter: 2023Q4

REPORT INFORMATION
  Report Type: Spontaneous
  Country: AU (occurrence: AU)
  Receive Date: 20231020
  Receipt Date: 20231020
  Transmission Date: 20240109
  Serious: Yes (Hospitalization, Other)
  Sender: FDA-Public Use
  Company Number: AU-SANDOZ-SDZ2023AU022224

PATIENT
  Age: 31 Year
  Sex: Male

DRUGS (2)
  1. QUETIAPINE [Suspect]
     Active Substance: QUETIAPINE
     Indication: Generalised anxiety disorder
     Dosage: 25 MG AT NIGHT
     Route: 065
  2. VALPROATE [Concomitant]
     Active Substance: VALPROIC ACID
     Indication: Bipolar disorder
     Dosage: 500 MG AT NIGHT
     Route: 065

REACTIONS (1)
  - Catatonia [Recovering/Resolving]
